FAERS Safety Report 10615429 (Version 1)
Quarter: 2014Q4

REPORT INFORMATION
  Report Type: Spontaneous
  Country: US (occurrence: US)
  Receive Date: 20141201
  Receipt Date: 20141201
  Transmission Date: 20150529
  Serious: No
  Sender: FDA-Public Use
  Company Number: US-PFIZER INC-2014325981

PATIENT
  Age: 74 Year
  Sex: Male

DRUGS (1)
  1. SUTENT [Suspect]
     Active Substance: SUNITINIB MALATE
     Dosage: 50 MG, DAILY, CYCLIC (4 WEEKS ON AND 2 WEEKS OFF)
     Dates: start: 20141115

REACTIONS (3)
  - Decreased appetite [Unknown]
  - Nausea [Unknown]
  - Asthenia [Unknown]
